FAERS Safety Report 7455194-0 (Version None)
Quarter: 2011Q2

REPORT INFORMATION
  Report Type: 
  Country: None (occurrence: None)
  Receive Date: 20110503
  Receipt Date: 20110418
  Transmission Date: 20111010
  Serious: Yes (Other)
  Sender: FDA-Public Use
  Company Number: PHHY2011CA35328

PATIENT
  Age: 68 Year
  Sex: Female

DRUGS (2)
  1. INTERFERON BETA-1B [Suspect]
     Indication: MULTIPLE SCLEROSIS
     Dosage: 250 UG, QOD (FOR 119 MONTHS)
     Route: 058
  2. VITAMIN B-12 [Concomitant]
     Route: 030

REACTIONS (6)
  - INJECTION SITE NODULE [None]
  - SUBCUTANEOUS ABSCESS [None]
  - STAPHYLOCOCCAL INFECTION [None]
  - EXCESSIVE GRANULATION TISSUE [None]
  - PANNICULITIS LOBULAR [None]
  - NECROSIS [None]
